FAERS Safety Report 8766743 (Version 1)
Quarter: 2012Q4

REPORT INFORMATION
  Report Type: 
  Country: BR (occurrence: BR)
  Receive Date: 20120831
  Receipt Date: 20120831
  Transmission Date: 20130627
  Serious: Yes (Death)
  Sender: FDA-Public Use
  Company Number: BR-ASTELLAS-2012US007364

PATIENT
  Sex: Female

DRUGS (1)
  1. TARCEVA [Suspect]
     Indication: LUNG CANCER METASTATIC
     Dosage: 200 mg, UID/QD
     Route: 048
     Dates: start: 20100422, end: 20100618

REACTIONS (2)
  - Overdose [Unknown]
  - Death [Fatal]
